FAERS Safety Report 16383092 (Version 1)
Quarter: 2019Q2

REPORT INFORMATION
  Report Type: Spontaneous
  Country: CZ (occurrence: CZ)
  Receive Date: 20190603
  Receipt Date: 20190603
  Transmission Date: 20190711
  Serious: Yes (Other)
  Sender: FDA-Public Use
  Company Number: PHHY2019CZ127327

PATIENT

DRUGS (2)
  1. ALPROSTAN [Concomitant]
     Indication: PRODUCT USED FOR UNKNOWN INDICATION
     Dosage: 150 NG/KG/MIN, UNK
     Route: 065
  2. AMIODARONE [Suspect]
     Active Substance: AMIODARONE
     Indication: ELECTROLYTE IMBALANCE
     Dosage: UNK
     Route: 065

REACTIONS (6)
  - Staphylococcal infection [Recovering/Resolving]
  - Sodium retention [Recovering/Resolving]
  - Liver disorder [Recovering/Resolving]
  - Candida infection [Recovering/Resolving]
  - Enterobacter infection [Recovering/Resolving]
  - Coagulopathy [Recovering/Resolving]
